FAERS Safety Report 7936761-4 (Version None)
Quarter: 2011Q4

REPORT INFORMATION
  Report Type: 
  Country: None (occurrence: None)
  Receive Date: 20111123
  Receipt Date: 20111114
  Transmission Date: 20120403
  Serious: Yes (Hospitalization)
  Sender: FDA-Public Use
  Company Number: US-BAYER-2011-078750

PATIENT
  Age: 59 Year
  Sex: Male

DRUGS (20)
  1. LORAZEPAM [Concomitant]
     Dosage: UNK
     Dates: start: 20110809
  2. GENERLAC [Concomitant]
     Dosage: UNK, QD
     Dates: start: 20110609
  3. NEXAVAR [Suspect]
     Indication: HEPATIC NEOPLASM MALIGNANT
     Dosage: 200 MG, BID
     Route: 048
     Dates: start: 20100804, end: 20111113
  4. NICOTINE [Concomitant]
     Dosage: UNK
     Dates: start: 20110706
  5. MIRTAZAPINE [Concomitant]
     Dosage: UNK
     Dates: start: 20110615
  6. HYDROMORPHONE HCL [Concomitant]
     Dosage: UNK
     Dates: start: 20110621
  7. SPIRONOLACTONE [Concomitant]
     Dosage: UNK
     Dates: start: 20110809
  8. PANTOPRAZOLE [Concomitant]
     Dosage: UNK
     Dates: start: 20110623
  9. CENTRUM [Concomitant]
     Dosage: UNK UNK, QD
     Dates: start: 20110609
  10. METOCLOPRAM [Concomitant]
     Dosage: 10 MG, QD
     Dates: start: 20110609
  11. HYDROCODONE BITARTRATE AND ACETAMINOPHEN [Concomitant]
     Dosage: UNK, HS
  12. METHADONE HYDROCHLORIDE [Concomitant]
     Dosage: UNK
     Dates: start: 20110712
  13. NICOTINE [Concomitant]
     Dosage: UNK
     Dates: start: 20110524
  14. HYDROMORPHONE HCL [Concomitant]
     Dosage: 4 MG/H, UNK
     Dates: start: 20110609
  15. ALPRAZOLAM [Concomitant]
     Dosage: 0.25 MG, QD
     Dates: start: 20110809
  16. METOCLOPRAMIDE [Concomitant]
     Dosage: UNK
     Dates: start: 20110524
  17. OXYCODONE HCL [Concomitant]
     Dosage: UNK
     Dates: start: 20110823
  18. FUROSEMIDE [Concomitant]
     Dosage: UNK
     Dates: start: 20110809
  19. HYDROCODONE BITARTRATE AND ACETAMINOPHEN [Concomitant]
     Dosage: UNK
     Dates: start: 20110321
  20. GENERLAC [Concomitant]
     Dosage: UNK
     Dates: start: 20110809

REACTIONS (2)
  - DIARRHOEA [None]
  - PALMAR-PLANTAR ERYTHRODYSAESTHESIA SYNDROME [None]
